FAERS Safety Report 16615240 (Version 1)
Quarter: 2019Q3

REPORT INFORMATION
  Report Type: Spontaneous
  Country: JP (occurrence: JP)
  Receive Date: 20190723
  Receipt Date: 20190723
  Transmission Date: 20191004
  Serious: Yes (Hospitalization)
  Sender: FDA-Public Use
  Company Number: JP-GLAXOSMITHKLINE-JP2019JPN109462

PATIENT
  Sex: Male

DRUGS (2)
  1. SEREVENT DISKUS [Suspect]
     Active Substance: SALMETEROL XINAFOATE
     Dosage: 50 ?G, BID
     Route: 055
     Dates: start: 201906
  2. SEREVENT DISKUS [Suspect]
     Active Substance: SALMETEROL XINAFOATE
     Dosage: 100 ?G, BID
     Route: 055
     Dates: end: 201906

REACTIONS (2)
  - Overdose [Unknown]
  - Hospitalisation [Unknown]

NARRATIVE: CASE EVENT DATE: 201906
